FAERS Safety Report 5557232-9 (Version None)
Quarter: 2007Q4

REPORT INFORMATION
  Report Type: 
  Country: None (occurrence: None)
  Receive Date: 20071214
  Receipt Date: 20071210
  Transmission Date: 20080405
  Serious: Yes (Death)
  Sender: FDA-Public Use
  Company Number: DE-BRISTOL-MYERS SQUIBB COMPANY-14009724

PATIENT
  Age: 67 Year
  Sex: Female

DRUGS (3)
  1. CYCLOPHOSPHAMIDE [Suspect]
     Indication: IMMUNOSUPPRESSION
     Dosage: RECEIVED ON DAY 4 TO 3.
  2. FLUDARABINE PHOSPHATE [Suspect]
     Indication: IMMUNOSUPPRESSION
     Dosage: RECEIVED ON DAY 7 TO 4.
  3. ANTITHYMOCYTE GLOBULIN [Suspect]
     Indication: IMMUNOSUPPRESSION
     Dosage: 20MG/KG ON DAY 3 AND 10MG/KG ON DAY 2.RECEIVED TOTAL OF 200MG.

REACTIONS (2)
  - ENCEPHALITIS [None]
  - SEPTIC SHOCK [None]
